FAERS Safety Report 8371756-0 (Version None)
Quarter: 2012Q2

REPORT INFORMATION
  Report Type: 
  Country: None (occurrence: None)
  Receive Date: 20120518
  Receipt Date: 20120509
  Transmission Date: 20120825
  Serious: Yes (Other)
  Sender: FDA-Public Use
  Company Number: US-ROCHE-784701

PATIENT
  Sex: Male
  Weight: 96.702 kg

DRUGS (3)
  1. ACCUTANE [Suspect]
     Indication: PRODUCT USED FOR UNKNOWN INDICATION
     Route: 065
     Dates: start: 19970107, end: 19970124
  2. ACCUTANE [Suspect]
  3. METROGYL [Concomitant]

REACTIONS (4)
  - COLITIS ULCERATIVE [None]
  - DEPRESSION [None]
  - GRAND MAL CONVULSION [None]
  - INFLAMMATORY BOWEL DISEASE [None]
